FAERS Safety Report 17563844 (Version 2)
Quarter: 2020Q3

REPORT INFORMATION
  Report Type: Report from Study
  Country: US (occurrence: US)
  Receive Date: 20200319
  Receipt Date: 20200730
  Transmission Date: 20201102
  Serious: Yes (Other)
  Sender: FDA-Public Use
  Company Number: NVSC2020US072749

PATIENT
  Sex: Male

DRUGS (2)
  1. TEGRETOL [Suspect]
     Active Substance: CARBAMAZEPINE
     Indication: SEIZURE
     Dosage: 200 MG, BID
     Route: 048
     Dates: start: 20200116
  2. TEGRETOL [Suspect]
     Active Substance: CARBAMAZEPINE
     Dosage: 200 MG, QD
     Route: 048
     Dates: start: 20200428

REACTIONS (5)
  - Seizure [Unknown]
  - Incoherent [Unknown]
  - Micturition disorder [Unknown]
  - Speech disorder [Recovered/Resolved]
  - Confusional state [Unknown]
